FAERS Safety Report 21531325 (Version 1)
Quarter: 2022Q4

REPORT INFORMATION
  Report Type: Spontaneous
  Country: US (occurrence: None)
  Receive Date: 20221028
  Receipt Date: 20221028
  Transmission Date: 20230113
  Serious: No
  Sender: FDA-Public Use
  Company Number: None

PATIENT
  Age: 62 Year
  Sex: Male
  Weight: 275 kg

DRUGS (2)
  1. NIRMATRELVIR\RITONAVIR [Suspect]
     Active Substance: NIRMATRELVIR\RITONAVIR
     Indication: COVID-19
     Dosage: 150MG/100MG MG BID ?150MG/100MG BID PO
     Dates: start: 20220303, end: 20220808
  2. NIRMATRELVIR\RITONAVIR [Suspect]
     Active Substance: NIRMATRELVIR\RITONAVIR
     Dosage: OTHER QUANTITY : 150MG/100MG MG;?FREQUENCY : TWICE A DAY;?
     Route: 048
     Dates: start: 20220203, end: 20220208

REACTIONS (2)
  - Myalgia [None]
  - Dysgeusia [None]

NARRATIVE: CASE EVENT DATE: 20220207
